FAERS Safety Report 15695193 (Version 1)
Quarter: 2018Q4

REPORT INFORMATION
  Report Type: Spontaneous
  Country: US (occurrence: US)
  Receive Date: 20181206
  Receipt Date: 20181206
  Transmission Date: 20190205
  Serious: No
  Sender: FDA-Public Use
  Company Number: US-ENDO PHARMACEUTICALS INC-2018-042399

PATIENT
  Age: 44 Year
  Sex: Male
  Weight: 81.63 kg

DRUGS (12)
  1. XIAFLEX [Suspect]
     Active Substance: COLLAGENASE CLOSTRIDIUM HISTOLYTICUM
     Dosage: UNK THIRD CYCLE; SECOND PLAQUE
     Route: 026
     Dates: start: 2018
  2. XIAFLEX [Suspect]
     Active Substance: COLLAGENASE CLOSTRIDIUM HISTOLYTICUM
     Dosage: UNK SECOND CYCLE; SECOND PLAQUE
     Route: 026
     Dates: start: 2018
  3. XIAFLEX [Suspect]
     Active Substance: COLLAGENASE CLOSTRIDIUM HISTOLYTICUM
     Dosage: UNK FOURTH CYCLE; FIRST INJECTION FIRST PLAQUE
     Route: 026
     Dates: start: 20180320
  4. XIAFLEX [Suspect]
     Active Substance: COLLAGENASE CLOSTRIDIUM HISTOLYTICUM
     Dosage: UNK THIRD CYCLE; FIRST INJECTION FIRST PLAQUE
     Route: 026
     Dates: start: 20180108
  5. XIAFLEX [Suspect]
     Active Substance: COLLAGENASE CLOSTRIDIUM HISTOLYTICUM
     Dosage: UNK FIRST CYCLE, INJECTION 1 AND 2 SECOND PLAQUE
     Route: 026
     Dates: start: 2018
  6. XIAFLEX [Suspect]
     Active Substance: COLLAGENASE CLOSTRIDIUM HISTOLYTICUM
     Dosage: UNK FOURTH CYCLE; SECOND INJECTION FIRST PLAQUE
     Route: 026
     Dates: start: 20180322
  7. XIAFLEX [Suspect]
     Active Substance: COLLAGENASE CLOSTRIDIUM HISTOLYTICUM
     Dosage: UNK SECOND CYCLE; FIRST INJECTION  FIRST PLAQUE
     Route: 026
     Dates: start: 20171127
  8. XIAFLEX [Suspect]
     Active Substance: COLLAGENASE CLOSTRIDIUM HISTOLYTICUM
     Dosage: UNK FIRST CYCLE SECOND INJECTION FIRST PLAQUE
     Route: 026
     Dates: start: 20171011
  9. XIAFLEX [Suspect]
     Active Substance: COLLAGENASE CLOSTRIDIUM HISTOLYTICUM
     Indication: PEYRONIE^S DISEASE
     Dosage: UNK FOURTH CYCLE INJECTION 1+2, SECOND PLAQUE
     Route: 026
     Dates: start: 2018
  10. XIAFLEX [Suspect]
     Active Substance: COLLAGENASE CLOSTRIDIUM HISTOLYTICUM
     Dosage: UNK THIRD CYCLE; SECOND INJECTION FIRST PLAQUE
     Route: 026
     Dates: start: 20180118
  11. XIAFLEX [Suspect]
     Active Substance: COLLAGENASE CLOSTRIDIUM HISTOLYTICUM
     Dosage: UNK; SECOND CYCLE SECOND INJECTION FIRST PLAQUE
     Route: 026
     Dates: start: 2017
  12. XIAFLEX [Suspect]
     Active Substance: COLLAGENASE CLOSTRIDIUM HISTOLYTICUM
     Dosage: UNK; FIRST CYCLE FIRST INJECTION FIRST PLAQUE
     Route: 026
     Dates: start: 20171009

REACTIONS (2)
  - Injection site discolouration [Not Recovered/Not Resolved]
  - Inappropriate schedule of product administration [Recovered/Resolved]

NARRATIVE: CASE EVENT DATE: 2018
